FAERS Safety Report 9661229 (Version 1)
Quarter: 2013Q4

REPORT INFORMATION
  Report Type: Spontaneous
  Country: US (occurrence: None)
  Receive Date: 20131030
  Receipt Date: 20131030
  Transmission Date: 20140711
  Serious: No
  Sender: FDA-Public Use
  Company Number: 2013054673

PATIENT
  Age: 47 Year
  Sex: Male

DRUGS (1)
  1. FRAGMIN (DALTEPARIN SODIUM) SOLUTION FOR INJECTION [Suspect]
     Indication: NEOPLASM MALIGNANT
     Dates: start: 201211

REACTIONS (1)
  - Injection site mass [None]
